FAERS Safety Report 5562709-6 (Version None)
Quarter: 2007Q4

REPORT INFORMATION
  Report Type: 
  Country: None (occurrence: None)
  Receive Date: 20071211
  Receipt Date: 20071211
  Transmission Date: 20080405
  Serious: No
  Sender: FDA-Public Use
  Company Number: None

PATIENT
  Age: 71 Year
  Sex: Male

DRUGS (1)
  1. MOXIFLOXACIN HCL [Suspect]
     Dosage: 400MG EVERY DAY IV
     Route: 042
     Dates: start: 20071206, end: 20071208

REACTIONS (2)
  - RASH [None]
  - URTICARIA [None]
